FAERS Safety Report 16300689 (Version 2)
Quarter: 2019Q2

REPORT INFORMATION
  Report Type: Spontaneous
  Country: US (occurrence: US)
  Receive Date: 20190510
  Receipt Date: 20190530
  Transmission Date: 20190711
  Serious: No
  Sender: FDA-Public Use
  Company Number: PHEH2019US019661

PATIENT
  Age: 66 Year
  Sex: Female

DRUGS (1)
  1. RECLAST [Suspect]
     Active Substance: ZOLEDRONIC ACID
     Indication: PRODUCT USED FOR UNKNOWN INDICATION
     Dosage: UNK
     Route: 065

REACTIONS (8)
  - Neck pain [Unknown]
  - Musculoskeletal pain [Unknown]
  - Bone pain [Not Recovered/Not Resolved]
  - Muscle spasms [Unknown]
  - Myalgia [Unknown]
  - Pain in extremity [Unknown]
  - Musculoskeletal stiffness [Recovering/Resolving]
  - Chills [Unknown]

NARRATIVE: CASE EVENT DATE: 20190508
